FAERS Safety Report 13511056 (Version 2)
Quarter: 2017Q2

REPORT INFORMATION
  Report Type: Spontaneous
  Country: AR (occurrence: AR)
  Receive Date: 20170503
  Receipt Date: 20170508
  Transmission Date: 20170830
  Serious: Yes (Other)
  Sender: FDA-Public Use
  Company Number: AR-PFIZER INC-2017189853

PATIENT
  Age: 67 Year
  Sex: Male

DRUGS (1)
  1. INLYTA [Suspect]
     Active Substance: AXITINIB
     Indication: RENAL CELL CARCINOMA
     Dosage: 10 MG, DAILY
     Dates: start: 20170418

REACTIONS (4)
  - Osteomalacia [Unknown]
  - Pathological fracture [Unknown]
  - Bone pain [Unknown]
  - Multiple fractures [Unknown]

NARRATIVE: CASE EVENT DATE: 20170418
